FAERS Safety Report 8332603-6 (Version None)
Quarter: 2012Q1

REPORT INFORMATION
  Report Type: 
  Country: None (occurrence: None)
  Receive Date: 20120327
  Receipt Date: 20101218
  Transmission Date: 20120608
  Serious: Yes (Other)
  Sender: FDA-Public Use
  Company Number: PHEH2009US07065

PATIENT
  Age: 78 Year
  Sex: Male

DRUGS (1)
  1. GLEEVEC [Suspect]
     Indication: CHRONIC MYELOID LEUKAEMIA
     Dosage: 200 MG, QD, ORAL
     Route: 048
     Dates: start: 20080828

REACTIONS (6)
  - DEAFNESS [None]
  - PRURITUS GENERALISED [None]
  - MUSCLE SPASMS [None]
  - ERECTILE DYSFUNCTION [None]
  - DIARRHOEA [None]
  - OEDEMA PERIPHERAL [None]
